FAERS Safety Report 4313117-7 (Version None)
Quarter: 2004Q1

REPORT INFORMATION
  Report Type: 
  Country: None (occurrence: None)
  Receive Date: 20040304
  Receipt Date: 20040218
  Transmission Date: 20041129
  Serious: Yes (Hospitalization)
  Sender: FDA-Public Use
  Company Number: EWC040238095

PATIENT
  Age: 72 Year
  Sex: Female

DRUGS (1)
  1. PERMAX [Suspect]
     Indication: PARKINSON'S DISEASE
     Dates: start: 19980101, end: 20020101

REACTIONS (3)
  - OEDEMA PERIPHERAL [None]
  - RENAL DISORDER [None]
  - RETROPERITONEAL FIBROSIS [None]
